FAERS Safety Report 15857467 (Version 1)
Quarter: 2019Q1

REPORT INFORMATION
  Report Type: Spontaneous
  Country: US (occurrence: US)
  Receive Date: 20190122
  Receipt Date: 20190122
  Transmission Date: 20190417
  Serious: Yes (Other)
  Sender: FDA-Public Use
  Company Number: None

PATIENT
  Age: 64 Year
  Sex: Female

DRUGS (2)
  1. SOMATULINE DEPOT [Suspect]
     Active Substance: LANREOTIDE ACETATE
     Indication: GIGANTISM
     Dosage: ?          OTHER FREQUENCY:90MG EVERY 30 DAYS;?
     Route: 058
  2. SOMATULINE DEPOT [Suspect]
     Active Substance: LANREOTIDE ACETATE
     Indication: ACROMEGALY
     Dosage: ?          OTHER FREQUENCY:90MG EVERY 30 DAYS;?
     Route: 058

REACTIONS (1)
  - Injection site induration [None]

NARRATIVE: CASE EVENT DATE: 20190110
